FAERS Safety Report 20950497 (Version 2)
Quarter: 2022Q3

REPORT INFORMATION
  Report Type: Spontaneous
  Country: US (occurrence: US)
  Receive Date: 20220613
  Receipt Date: 20220725
  Transmission Date: 20221026
  Serious: Yes (Death, Life-Threatening, Hospitalization, Other)
  Sender: FDA-Public Use
  Company Number: US-MLMSERVICE-20220531-3586309-1

PATIENT
  Age: 68 Year
  Sex: Female

DRUGS (2)
  1. ATORVASTATIN [Suspect]
     Active Substance: ATORVASTATIN
     Indication: Cerebrovascular accident prophylaxis
  2. PROPOFOL [Suspect]
     Active Substance: PROPOFOL
     Indication: Sedative therapy
     Route: 042

REACTIONS (4)
  - Myopathy [Fatal]
  - Toxicity to various agents [Fatal]
  - Rhabdomyolysis [Fatal]
  - Renal failure [Fatal]
